FAERS Safety Report 19615835 (Version 3)
Quarter: 2024Q1

REPORT INFORMATION
  Report Type: Report from Study
  Country: US (occurrence: US)
  Receive Date: 20210727
  Receipt Date: 20240229
  Transmission Date: 20240409
  Serious: Yes (Other)
  Sender: FDA-Public Use
  Company Number: US-TAKEDA-2021TUS045201

PATIENT
  Sex: Female

DRUGS (3)
  1. HUMAN IMMUNOGLOBULIN G [Suspect]
     Active Substance: HUMAN IMMUNOGLOBULIN G
     Indication: Primary immunodeficiency syndrome
     Dosage: UNK UNK, 1/WEEK
     Route: 058
  2. HUMAN IMMUNOGLOBULIN G [Suspect]
     Active Substance: HUMAN IMMUNOGLOBULIN G
     Indication: Blood immunoglobulin G decreased
  3. HUMAN IMMUNOGLOBULIN G [Suspect]
     Active Substance: HUMAN IMMUNOGLOBULIN G
     Indication: Mannose-binding lectin deficiency

REACTIONS (8)
  - Lymphoma [Unknown]
  - Squamous cell carcinoma [Unknown]
  - Gastrointestinal disorder [Not Recovered/Not Resolved]
  - Thyroid disorder [Unknown]
  - Lactose intolerance [Unknown]
  - Cellulitis [Unknown]
  - Arthralgia [Unknown]
  - Product use in unapproved indication [Unknown]
